FAERS Safety Report 8158084-3 (Version None)
Quarter: 2012Q1

REPORT INFORMATION
  Report Type: 
  Country: None (occurrence: None)
  Receive Date: 20120222
  Receipt Date: 20120216
  Transmission Date: 20120608
  Serious: Yes (Other)
  Sender: FDA-Public Use
  Company Number: HU-MERCK-1202USA02737

PATIENT
  Age: 77 Year
  Sex: Female
  Weight: 65 kg

DRUGS (5)
  1. GLIPREX [Concomitant]
     Indication: DIABETES MELLITUS
     Route: 065
     Dates: start: 20020101
  2. AMLODIPINE [Concomitant]
     Indication: HYPERTENSION
     Route: 065
     Dates: start: 20070101
  3. ADIMET [Concomitant]
     Indication: DIABETES MELLITUS
     Route: 065
     Dates: start: 20020101
  4. METOPROLOL TARTRATE [Concomitant]
     Indication: HYPERTENSION
     Route: 065
     Dates: start: 20070101
  5. JANUMET [Suspect]
     Indication: TYPE 2 DIABETES MELLITUS
     Route: 048
     Dates: start: 20120116, end: 20120212

REACTIONS (1)
  - OEDEMA PERIPHERAL [None]
